FAERS Safety Report 8797124 (Version 2)
Quarter: 2015Q1

REPORT INFORMATION
  Report Type: Report from Study
  Country: US (occurrence: US)
  Receive Date: 20120919
  Receipt Date: 20150311
  Transmission Date: 20150721
  Serious: Yes (Death)
  Sender: FDA-Public Use
  Company Number: US-ROCHE-1123588

PATIENT
  Sex: Female

DRUGS (26)
  1. AVASTIN [Suspect]
     Active Substance: BEVACIZUMAB
     Indication: OVARIAN CANCER
     Dosage: INFUSE OVER 90 MINUTE AT 66.6667 ML/HR WITH NORMAL SALINE 0.9 % INJECTION (100 ML)
     Route: 042
     Dates: start: 20100414
  2. ONDANSETRON [Concomitant]
     Active Substance: ONDANSETRON
     Dosage: INFUSION OVER 15 MINUTE AT 200 ML/HR WITH NORMAL SALINE 0.9 % (50 ML)
     Route: 042
     Dates: start: 20100421
  3. DEXAMETHASONE. [Concomitant]
     Active Substance: DEXAMETHASONE
     Dosage: INFUSION OVER 15 MINUTE AT 200 ML/HR WITH NORMAL SALINE 0.9 % (50 ML)
     Route: 042
     Dates: start: 20100414
  4. DEXAMETHASONE. [Concomitant]
     Active Substance: DEXAMETHASONE
     Dosage: INFUSION OVER 15 MINUTE AT 200 ML/HR WITH NORMAL SALINE 0.9 % (50 ML)
     Route: 042
     Dates: start: 20100526
  5. ONDANSETRON [Concomitant]
     Active Substance: ONDANSETRON
     Dosage: INFUSION OVER 15 MINUTE AT 200 ML/HR WITH NORMAL SALINE 0.9 % (50 ML)
     Route: 042
     Dates: start: 20100526
  6. ONDANSETRON [Concomitant]
     Active Substance: ONDANSETRON
     Dosage: INFUSION OVER 15 MINUTE AT 200 ML/HR WITH NORMAL SALINE 0.9 % (50 ML)
     Route: 042
     Dates: start: 20100623
  7. DEXAMETHASONE. [Concomitant]
     Active Substance: DEXAMETHASONE
     Dosage: INFUSION OVER 15 MINUTE AT 200 ML/HR WITH NORMAL SALINE 0.9 % (50 ML)
     Route: 042
     Dates: start: 20100609
  8. DOXIL [Concomitant]
     Active Substance: DOXORUBICIN HYDROCHLORIDE
  9. AVASTIN [Suspect]
     Active Substance: BEVACIZUMAB
     Dosage: INFUSION OVER 30 MINUTE AT 100 ML/HR WITH NORMAL SALINE 0.9 % INJECTION (100 ML)
     Route: 042
     Dates: start: 20100526
  10. GEMZAR [Concomitant]
     Active Substance: GEMCITABINE HYDROCHLORIDE
     Dosage: INFUSION OVER 30 MINUTE AT 500 ML/HR WITH NORMAL SALINE 0.9 % (250 ML)
     Route: 042
     Dates: start: 20100414
  11. GEMZAR [Concomitant]
     Active Substance: GEMCITABINE HYDROCHLORIDE
     Dosage: INFUSION OVER 30 MINUTE AT 500 ML/HR WITH NORMAL SALINE 0.9 % (250 ML)
     Route: 042
     Dates: start: 20100512
  12. AVASTIN [Suspect]
     Active Substance: BEVACIZUMAB
     Dosage: INFUSION OVER 30 MINUTE AT 200 ML/HR WITH NORMAL SALINE 0.9 % (100 ML)
     Route: 042
     Dates: start: 20100609
  13. AVASTIN [Suspect]
     Active Substance: BEVACIZUMAB
     Dosage: INFUSE OVER 60 MINUTE AT 100 ML/HR WITH SODIUM CHLORIDE 0.9 % INJECTION (100 ML)
     Route: 042
     Dates: start: 20100421
  14. AVASTIN [Suspect]
     Active Substance: BEVACIZUMAB
     Dosage: INFUSION OVER 30 MINUTE AT 200 ML/HR WITH NORMAL SALINE 0.9 % (100 ML)
     Route: 042
     Dates: start: 20100623
  15. ONDANSETRON [Concomitant]
     Active Substance: ONDANSETRON
     Dosage: INFUSION OVER 15 MINUTE AT 200 ML/HR WITH NORMAL SALINE 0.9 % (50 ML)
     Route: 042
     Dates: start: 20100609
  16. DEXAMETHASONE. [Concomitant]
     Active Substance: DEXAMETHASONE
     Dosage: INFUSION OVER 15 MINUTE AT 200 ML/HR WITH NORMAL SALINE 0.9 % (50 ML)
     Route: 042
     Dates: start: 20100623
  17. GEMZAR [Concomitant]
     Active Substance: GEMCITABINE HYDROCHLORIDE
     Dosage: INFUSION OVER 30 MINUTE AT 500 ML/HR WITH NORMAL SALINE 0.9 % (250 ML)
     Route: 042
     Dates: start: 20100421
  18. GEMZAR [Concomitant]
     Active Substance: GEMCITABINE HYDROCHLORIDE
     Dosage: INFUSION OVER 30 MINUTE AT 500 ML/HR WITH NORMAL SALINE 0.9 % (250 ML)
     Route: 042
     Dates: start: 20100623
  19. ONDANSETRON [Concomitant]
     Active Substance: ONDANSETRON
     Dosage: INFUSION OVER 15 MINUTE AT 200 ML/HR WITH NORMAL SALINE 0.9 % (50 ML)
     Route: 042
     Dates: start: 20100512
  20. DEXAMETHASONE. [Concomitant]
     Active Substance: DEXAMETHASONE
     Dosage: INFUSION OVER 15 MINUTE AT 200 ML/HR WITH NORMAL SALINE 0.9 % (50 ML)
     Route: 042
     Dates: start: 20100512
  21. GEMZAR [Concomitant]
     Active Substance: GEMCITABINE HYDROCHLORIDE
     Dosage: INFUSION OVER 30 MINUTE AT 500 ML/HR WITH NORMAL SALINE 0.9 % (250 ML)
     Route: 042
     Dates: start: 20100526
  22. ONDANSETRON [Concomitant]
     Active Substance: ONDANSETRON
     Dosage: INFUSION OVER 15 MINUTE AT 200 ML/HR WITH NORMAL SALINE 0.9 % (50 ML)
     Route: 042
     Dates: start: 20100414
  23. DEXAMETHASONE. [Concomitant]
     Active Substance: DEXAMETHASONE
     Dosage: INFUSION OVER 15 MINUTE AT 200 ML/HR WITH NORMAL SALINE 0.9 % (50 ML)
     Route: 042
     Dates: start: 20100421
  24. NACL .9% [Concomitant]
     Route: 065
  25. AVASTIN [Suspect]
     Active Substance: BEVACIZUMAB
     Dosage: INFUSION OVER 60 MINUTE AT 100 ML/HR WITH NORMAL SALINE INJECTION 0.9 % (100 ML)
     Route: 042
     Dates: start: 20100512
  26. GEMZAR [Concomitant]
     Active Substance: GEMCITABINE HYDROCHLORIDE
     Dosage: INFUSION OVER 30 MINUTE AT 500 ML/HR WITH NORMAL SALINE 0.9% (250 ML)
     Route: 042
     Dates: start: 20100609

REACTIONS (3)
  - Stomatitis [Unknown]
  - Death [Fatal]
  - Rash [Recovered/Resolved]
